FAERS Safety Report 12913190 (Version 1)
Quarter: 2016Q4

REPORT INFORMATION
  Report Type: Spontaneous
  Country: IN (occurrence: IN)
  Receive Date: 20161104
  Receipt Date: 20161104
  Transmission Date: 20170207
  Serious: Yes (Other)
  Sender: FDA-Public Use
  Company Number: IN-SA-2016SA197673

PATIENT
  Sex: Female

DRUGS (10)
  1. ISONIAZID. [Suspect]
     Active Substance: ISONIAZID
     Indication: LYMPH NODE TUBERCULOSIS
     Route: 065
     Dates: start: 2011, end: 2011
  2. ETHAMBUTOL [Suspect]
     Active Substance: ETHAMBUTOL HYDROCHLORIDE
     Indication: LYMPH NODE TUBERCULOSIS
     Route: 065
     Dates: start: 2011, end: 2011
  3. RIFAMPICIN [Suspect]
     Active Substance: RIFAMPIN
     Indication: LYMPH NODE TUBERCULOSIS
     Route: 065
     Dates: start: 2011, end: 2011
  4. RIFAMPICIN [Suspect]
     Active Substance: RIFAMPIN
     Indication: LYMPHADENITIS
     Route: 065
     Dates: start: 2011, end: 2011
  5. PYRAZINAMIDE. [Suspect]
     Active Substance: PYRAZINAMIDE
     Indication: LYMPH NODE TUBERCULOSIS
     Route: 065
     Dates: start: 2011, end: 2011
  6. STREPTOMYCIN SULFATE. [Suspect]
     Active Substance: STREPTOMYCIN SULFATE
     Indication: LYMPH NODE TUBERCULOSIS
     Route: 065
     Dates: start: 2011, end: 2011
  7. STREPTOMYCIN SULFATE. [Suspect]
     Active Substance: STREPTOMYCIN SULFATE
     Indication: LYMPHADENITIS
     Route: 065
     Dates: start: 2011, end: 2011
  8. ISONIAZID. [Suspect]
     Active Substance: ISONIAZID
     Indication: LYMPHADENITIS
     Route: 065
     Dates: start: 2011, end: 2011
  9. ETHAMBUTOL [Suspect]
     Active Substance: ETHAMBUTOL HYDROCHLORIDE
     Indication: LYMPHADENITIS
     Route: 065
     Dates: start: 2011, end: 2011
  10. PYRAZINAMIDE. [Suspect]
     Active Substance: PYRAZINAMIDE
     Indication: LYMPHADENITIS
     Route: 065
     Dates: start: 2011, end: 2011

REACTIONS (6)
  - Drug ineffective [Unknown]
  - Vertigo [Unknown]
  - Pneumonia [Recovering/Resolving]
  - Dyspnoea [Recovering/Resolving]
  - Pyrexia [Recovering/Resolving]
  - Vomiting [Unknown]

NARRATIVE: CASE EVENT DATE: 201112
